FAERS Safety Report 16092370 (Version 4)
Quarter: 2020Q2

REPORT INFORMATION
  Report Type: Spontaneous
  Country: US (occurrence: US)
  Receive Date: 20190319
  Receipt Date: 20200624
  Transmission Date: 20200713
  Serious: No
  Sender: FDA-Public Use
  Company Number: US-ACTELION-A-NJ2018-170271

PATIENT
  Age: 57 Year
  Sex: Female

DRUGS (2)
  1. TRACLEER [Suspect]
     Active Substance: BOSENTAN
     Indication: PULMONARY ARTERIAL HYPERTENSION
     Dosage: 125 MG, QD
     Route: 048
     Dates: start: 20090118
  2. TRACLEER [Suspect]
     Active Substance: BOSENTAN
     Dosage: 125 MG, BID
     Route: 048
     Dates: end: 201812

REACTIONS (8)
  - Influenza [Unknown]
  - Connective tissue disorder [Unknown]
  - Hypertension [Not Recovered/Not Resolved]
  - Depression [Unknown]
  - Dyspnoea [Unknown]
  - Respiration abnormal [Unknown]
  - Product dose omission [Not Recovered/Not Resolved]
  - Malaise [Unknown]

NARRATIVE: CASE EVENT DATE: 201709
